FAERS Safety Report 6531505-5 (Version None)
Quarter: 2010Q1

REPORT INFORMATION
  Report Type: 
  Country: None (occurrence: None)
  Receive Date: 20100108
  Receipt Date: 20091123
  Transmission Date: 20100710
  Serious: Yes (Hospitalization)
  Sender: FDA-Public Use
  Company Number: JP-SANOFI-AVENTIS-2009SA007009

PATIENT
  Age: 43 Year
  Sex: Female

DRUGS (5)
  1. ELPLAT [Suspect]
     Indication: COLON CANCER METASTATIC
     Route: 041
  2. AVASTIN [Suspect]
     Indication: COLON CANCER METASTATIC
     Route: 041
     Dates: start: 20091027, end: 20091111
  3. FLUOROURACIL [Suspect]
     Indication: COLON CANCER METASTATIC
     Route: 041
  4. CISPLATIN [Suspect]
     Indication: COLON CANCER METASTATIC
     Route: 041
  5. CALCIUM LEVOFOLINATE [Suspect]
     Indication: COLON CANCER METASTATIC
     Route: 041

REACTIONS (1)
  - GASTROINTESTINAL PERFORATION [None]
